FAERS Safety Report 20328560 (Version 1)
Quarter: 2022Q1

REPORT INFORMATION
  Report Type: Report from Study
  Country: JP (occurrence: JP)
  Receive Date: 20220112
  Receipt Date: 20220112
  Transmission Date: 20220423
  Serious: Yes (Life-Threatening)
  Sender: FDA-Public Use
  Company Number: JP-PFIZER INC-202200031010

PATIENT

DRUGS (3)
  1. IRINOTECAN HYDROCHLORIDE [Suspect]
     Active Substance: IRINOTECAN HYDROCHLORIDE
     Indication: Non-small cell lung cancer
     Dosage: 60 MG/M2, CYCLIC (ON DAYS 1,8 AND 15)
     Route: 042
  2. CISPLATIN [Suspect]
     Active Substance: CISPLATIN
     Indication: Non-small cell lung cancer
     Dosage: 60 MG/M2, CYCLIC (ON DAY 1 EVERY 4 WEEKS)
     Route: 042
  3. RAMUCIRUMAB [Suspect]
     Active Substance: RAMUCIRUMAB
     Indication: Non-small cell lung cancer
     Dosage: 10 MG/KG, CYCLIC (1 H EVERY 2 WEEKS)
     Route: 042

REACTIONS (1)
  - Hyperglycaemia [Unknown]
